FAERS Safety Report 10573683 (Version 3)
Quarter: 2014Q4

REPORT INFORMATION
  Report Type: Spontaneous
  Country: US (occurrence: US)
  Receive Date: 20141110
  Receipt Date: 20141114
  Transmission Date: 20150529
  Serious: Yes (Hospitalization, Other)
  Sender: FDA-Public Use
  Company Number: US-009507513-1108USA01237

PATIENT
  Sex: Female
  Weight: 68.39 kg

DRUGS (3)
  1. FOSAMAX [Suspect]
     Active Substance: ALENDRONATE SODIUM
     Indication: OSTEOPOROSIS
     Dosage: 70 MG, UNK
     Route: 048
     Dates: start: 20100217
  2. ALENDRONATE SODIUM. [Suspect]
     Active Substance: ALENDRONATE SODIUM
     Indication: OSTEOPOROSIS
     Dosage: 70 MG, QW
     Route: 048
     Dates: start: 20070914, end: 20100215
  3. FOSAMAX [Suspect]
     Active Substance: ALENDRONATE SODIUM
     Indication: OSTEOPOROSIS
     Dosage: 70 MG, QW
     Route: 048
     Dates: start: 1995, end: 200805

REACTIONS (36)
  - Tonsillectomy [Unknown]
  - Haemoglobin decreased [Unknown]
  - Haematocrit decreased [Unknown]
  - Chronic obstructive pulmonary disease [Unknown]
  - Depression [Unknown]
  - Breast pain [Unknown]
  - Balance disorder [Unknown]
  - Headache [Unknown]
  - Femur fracture [Unknown]
  - Fall [Unknown]
  - Anxiety [Unknown]
  - Bronchospasm [Unknown]
  - Asthenia [Unknown]
  - Vertigo positional [Recovered/Resolved]
  - Arthralgia [Unknown]
  - Ear operation [Unknown]
  - Osteopenia [Unknown]
  - Intramedullary rod insertion [Unknown]
  - Patella fracture [Unknown]
  - Deafness [Not Recovered/Not Resolved]
  - Fall [Unknown]
  - Anxiety [Unknown]
  - Nasal disorder [Unknown]
  - Vision blurred [Unknown]
  - Blindness [Unknown]
  - Hysterectomy [Unknown]
  - Cholecystectomy [Unknown]
  - Hypertension [Unknown]
  - Osteoarthritis [Unknown]
  - Fatigue [Unknown]
  - Arthropathy [Recovered/Resolved]
  - Gastrooesophageal reflux disease [Unknown]
  - Balance disorder [Unknown]
  - Restless legs syndrome [Unknown]
  - Lipids increased [Unknown]
  - Vitamin D deficiency [Unknown]

NARRATIVE: CASE EVENT DATE: 2000
